FAERS Safety Report 8673200 (Version 4)
Quarter: 2013Q2

REPORT INFORMATION
  Report Type: Spontaneous
  Country: US (occurrence: TR)
  Receive Date: 20120719
  Receipt Date: 20130520
  Transmission Date: 20140414
  Serious: Yes (Hospitalization, Other)
  Sender: FDA-Public Use
  Company Number: TR-009507513-1207TUR005059

PATIENT
  Age: 42 Year
  Sex: Female

DRUGS (3)
  1. SINGULAIR 10MG FILM TABLETS [Suspect]
     Indication: ASTHMA
     Route: 048
  2. ALBUTEROL [Concomitant]
     Indication: ASTHMA
     Dosage: UNK
     Route: 055
  3. FLUTICASONE PROPIONATE (+) SALMETEROL XINAFOATE [Concomitant]
     Indication: ASTHMA
     Dosage: UNK
     Route: 055

REACTIONS (1)
  - Acute hepatic failure [Recovered/Resolved]
